FAERS Safety Report 11219866 (Version 2)
Quarter: 2019Q1

REPORT INFORMATION
  Report Type: Spontaneous
  Country: US (occurrence: US)
  Receive Date: 20150625
  Receipt Date: 20190219
  Transmission Date: 20190417
  Serious: Yes (Other)
  Sender: FDA-Public Use
  Company Number: US-SA-2015SA062250

PATIENT
  Age: 79 Year
  Sex: Male

DRUGS (1)
  1. SEVELAMER SALT NOT SPECIFIED [Suspect]
     Active Substance: SEVELAMER
     Dosage: UNK UNK,UNK
     Route: 048

REACTIONS (2)
  - Colitis [Unknown]
  - Crystal deposit intestine [Unknown]
